FAERS Safety Report 7570762-3 (Version None)
Quarter: 2011Q2

REPORT INFORMATION
  Report Type: 
  Country: None (occurrence: None)
  Receive Date: 20110624
  Receipt Date: 20110610
  Transmission Date: 20111010
  Serious: Yes (Hospitalization)
  Sender: FDA-Public Use
  Company Number: US-ELI_LILLY_AND_COMPANY-US200910000888

PATIENT
  Sex: Female

DRUGS (9)
  1. NORCO [Concomitant]
     Dosage: 2 D/F, AS NEEDED
  2. FORTEO [Suspect]
     Dosage: UNK, UNK
     Dates: start: 20090901
  3. FORTEO [Suspect]
     Indication: OSTEOPOROSIS
     Dosage: 20 UG, QD
     Dates: start: 20090601, end: 20090701
  4. ANALGESICS [Concomitant]
  5. OXYCONTIN [Concomitant]
     Dosage: 20 D/F, 2/D
  6. NORCO [Concomitant]
     Dosage: UNK, 3/D
  7. FORTEO [Suspect]
     Dates: start: 20090801, end: 20090901
  8. PREDNISONE [Concomitant]
  9. FORTEO [Suspect]
     Dates: start: 20090701, end: 20090801

REACTIONS (7)
  - RESPIRATORY DISTRESS [None]
  - ASTHMA [None]
  - BONE PAIN [None]
  - PNEUMONIA [None]
  - ORGANISING PNEUMONIA [None]
  - FALL [None]
  - CONTUSION [None]
